FAERS Safety Report 9124467 (Version 1)
Quarter: 2013Q1

REPORT INFORMATION
  Report Type: Spontaneous
  Country: JP (occurrence: JP)
  Receive Date: 20130116
  Receipt Date: 20130116
  Transmission Date: 20140127
  Serious: Yes (Hospitalization, Other)
  Sender: FDA-Public Use
  Company Number: JP-PFIZER INC-2012316974

PATIENT
  Age: 56 Year
  Sex: Male
  Weight: 55 kg

DRUGS (12)
  1. LYRICA [Suspect]
     Indication: ARTHRALGIA
     Dosage: 150 MG, 2X/DAY
     Route: 048
     Dates: start: 201207, end: 20121209
  2. LYRICA [Suspect]
     Dosage: 150 MG, 1X/DAY
     Route: 048
     Dates: start: 20121210, end: 20121213
  3. LYRICA [Suspect]
     Dosage: 75 MG, 1X/DAY
     Route: 048
     Dates: start: 20121214, end: 20121217
  4. MOBIC [Concomitant]
     Indication: ARTHRALGIA
     Dosage: 5 MG, 2X/DAY
     Route: 048
  5. DEPAS [Concomitant]
     Dosage: 0.5 MG, 1X/DAY
     Route: 048
  6. JANUVIA [Concomitant]
     Indication: DIABETES MELLITUS
     Dosage: 50 MG, 1X/DAY
     Route: 048
  7. LIPITOR [Concomitant]
     Indication: HYPERLIPIDAEMIA
     Dosage: 5 MG, 1X/DAY
     Route: 048
  8. CIMETIDINE [Concomitant]
     Indication: ABDOMINAL DISCOMFORT
     Dosage: 200 MG, 2X/DAY
     Route: 048
  9. AMARYL [Concomitant]
     Indication: DIABETES MELLITUS
     Dosage: 1 MG, 2X/DAY
     Route: 048
  10. MAGNESIUM OXIDE [Concomitant]
     Dosage: 500 MG, 2X/DAY
  11. DOMPERIN [Concomitant]
     Dosage: 10 MG, 2X/DAY
  12. NAUZELIN [Suspect]
     Dosage: UNK

REACTIONS (2)
  - Cardiac failure [Not Recovered/Not Resolved]
  - Congestive cardiomyopathy [Not Recovered/Not Resolved]
